FAERS Safety Report 8079241-0 (Version None)
Quarter: 2012Q1

REPORT INFORMATION
  Report Type: 
  Country: None (occurrence: None)
  Receive Date: 20120128
  Receipt Date: 20110822
  Transmission Date: 20120608
  Serious: No
  Sender: FDA-Public Use
  Company Number: US-ABBOTT-11P-163-0848123-00

PATIENT
  Sex: Male

DRUGS (2)
  1. HUMIRA [Suspect]
     Route: 058
     Dates: start: 20110401
  2. HUMIRA [Suspect]
     Indication: PSORIATIC ARTHROPATHY
     Route: 058
     Dates: start: 20101201, end: 20110401

REACTIONS (6)
  - ARTHRALGIA [None]
  - PSORIASIS [None]
  - INJECTION SITE PAIN [None]
  - RASH GENERALISED [None]
  - PRURITUS GENERALISED [None]
  - DRUG EFFECT DECREASED [None]
